FAERS Safety Report 5593344-1 (Version None)
Quarter: 2008Q1

REPORT INFORMATION
  Report Type: 
  Country: None (occurrence: None)
  Receive Date: 20080116
  Receipt Date: 20080109
  Transmission Date: 20080703
  Serious: Yes (Other)
  Sender: FDA-Public Use
  Company Number: GB-ASTRAZENECA-2008GB00054

PATIENT
  Age: 52 Year
  Sex: Female

DRUGS (14)
  1. LIDOCAINE [Suspect]
     Indication: CATARACT OPERATION
     Route: 047
     Dates: start: 20070515, end: 20070515
  2. ADRENALINE [Suspect]
     Indication: EYE IRRIGATION
     Route: 047
     Dates: start: 20070515, end: 20070515
  3. BETAMETHASONE [Suspect]
     Indication: POSTOPERATIVE CARE
     Route: 047
     Dates: start: 20070515, end: 20070515
  4. BETAMETHASONE [Suspect]
     Dosage: DOSE INCREASED
     Route: 047
  5. CHLORAMPHENICOL [Suspect]
     Indication: CATARACT OPERATION
     Route: 047
     Dates: start: 20070515, end: 20070515
  6. CYCLOPENTOLATE HYDROCHLORIDE [Suspect]
     Indication: CATARACT OPERATION
     Route: 047
     Dates: start: 20070515, end: 20070515
  7. HYALURONATE SODIUM [Suspect]
     Indication: CATARACT OPERATION
     Route: 047
     Dates: start: 20070515, end: 20070515
  8. NEOMYCIN [Suspect]
     Indication: POSTOPERATIVE CARE
     Route: 047
     Dates: start: 20070515, end: 20070515
  9. OCUFEN [Suspect]
     Indication: PREOPERATIVE CARE
     Route: 047
     Dates: start: 20070515, end: 20070515
  10. PHENYLEPHRINE HYDROCHLORIDE [Suspect]
     Indication: CATARACT OPERATION
     Route: 047
     Dates: start: 20070515, end: 20070515
  11. POVIDONE IODINE [Suspect]
     Indication: CATARACT OPERATION
     Route: 047
     Dates: start: 20070515, end: 20070515
  12. VANCOMYCIN [Suspect]
     Indication: EYE IRRIGATION
     Route: 047
     Dates: start: 20070515, end: 20070515
  13. VANCOMYCIN [Suspect]
     Dosage: DOSE INCREASED
     Route: 047
  14. BALANCED SALT SOLUTION [Suspect]
     Route: 065

REACTIONS (1)
  - TOXIC ANTERIOR SEGMENT SYNDROME [None]
